FAERS Safety Report 16227943 (Version 1)
Quarter: 2019Q2

REPORT INFORMATION
  Report Type: Spontaneous
  Country: US (occurrence: US)
  Receive Date: 20190422
  Receipt Date: 20190422
  Transmission Date: 20190711
  Serious: No
  Sender: FDA-Public Use
  Company Number: None

PATIENT
  Age: 75 Year
  Sex: Female

DRUGS (9)
  1. VITAMIN B12 [Concomitant]
     Active Substance: CYANOCOBALAMIN
  2. OZEMPIC [Suspect]
     Active Substance: SEMAGLUTIDE
     Dosage: ?          QUANTITY:1 INJECTION(S);OTHER FREQUENCY:ONCE A WEEK;?
     Route: 061
     Dates: start: 20190405, end: 20190422
  3. VITAMIN D [Concomitant]
     Active Substance: VITAMIN D NOS
  4. CITALOPRAM [Concomitant]
     Active Substance: CITALOPRAM HYDROBROMIDE
  5. AMLODIPINE [Concomitant]
     Active Substance: AMLODIPINE BESYLATE
  6. LARSARTEN [Concomitant]
  7. HUMALOG INSLIN [Concomitant]
  8. ROSUVASTATIN. [Concomitant]
     Active Substance: ROSUVASTATIN
  9. ACLYVIR [Concomitant]

REACTIONS (2)
  - Constipation [None]
  - Vomiting [None]

NARRATIVE: CASE EVENT DATE: 20190419
